FAERS Safety Report 23081548 (Version 1)
Quarter: 2023Q4

REPORT INFORMATION
  Report Type: Spontaneous
  Country: CN (occurrence: CN)
  Receive Date: 20231019
  Receipt Date: 20231019
  Transmission Date: 20240109
  Serious: Yes (Hospitalization)
  Sender: FDA-Public Use
  Company Number: CN-ROCHE-3437322

PATIENT
  Age: 64 Year
  Sex: Female

DRUGS (2)
  1. CAPECITABINE [Suspect]
     Active Substance: CAPECITABINE
     Indication: Oesophageal squamous cell carcinoma
     Dosage: 1.0 G, PO, BID, FOR 2 WEEKS, FOLLOWED BY 1-WEEK BREAK, WITH 3 WEEKS AS A CYCLE?DAILY DOSE: 2 GRAM
     Route: 048
     Dates: start: 20210404
  2. CAMRELIZUMAB [Suspect]
     Active Substance: CAMRELIZUMAB
     Indication: Oesophageal squamous cell carcinoma
     Dosage: 200 MG/DOSE OF CARILIZUMAB INTRAVENOUSLY PERDAY/3 WEEKS?DAILY DOSE: 200 MILLIGRAM
     Route: 042
     Dates: start: 20210404

REACTIONS (1)
  - Reactive capillary endothelial proliferation [Recovered/Resolved]

NARRATIVE: CASE EVENT DATE: 20210101
